FAERS Safety Report 7413112-5 (Version None)
Quarter: 2011Q2

REPORT INFORMATION
  Report Type: 
  Country: None (occurrence: None)
  Receive Date: 20110413
  Receipt Date: 20110329
  Transmission Date: 20111010
  Serious: Yes (Disabling)
  Sender: FDA-Public Use
  Company Number: FR-GENENTECH-314272

PATIENT
  Sex: Female
  Weight: 70 kg

DRUGS (5)
  1. FLIXOTIDE [Concomitant]
     Indication: PRODUCT USED FOR UNKNOWN INDICATION
  2. FORADIL [Concomitant]
     Indication: PRODUCT USED FOR UNKNOWN INDICATION
  3. LEVOTHYROX [Concomitant]
     Indication: PRODUCT USED FOR UNKNOWN INDICATION
  4. XOLAIR [Suspect]
     Indication: ASTHMA
     Dosage: 450 MG, Q14D
     Dates: start: 20101110
  5. XOLAIR [Suspect]
     Dosage: 300 MG, Q2W
     Dates: start: 20110104

REACTIONS (1)
  - MYALGIA [None]
